FAERS Safety Report 9017081 (Version 1)
Quarter: 2013Q1

REPORT INFORMATION
  Report Type: Spontaneous
  Country: BR (occurrence: BR)
  Receive Date: 20130117
  Receipt Date: 20130117
  Transmission Date: 20140127
  Serious: Yes (Hospitalization, Other)
  Sender: FDA-Public Use
  Company Number: PHHY2013BR004089

PATIENT
  Age: 77 Year
  Sex: Female

DRUGS (2)
  1. DIOVAN [Suspect]
     Indication: HYPERTENSION
     Dosage: 320 MG, QD AT NIGHT
     Route: 048
     Dates: end: 20130102
  2. DIOVAN [Suspect]
     Dosage: 80 MG, DAILY

REACTIONS (2)
  - Gastrointestinal haemorrhage [Recovered/Resolved]
  - Blood pressure decreased [Recovered/Resolved]
